FAERS Safety Report 25687698 (Version 1)
Quarter: 2025Q3

REPORT INFORMATION
  Report Type: Other
  Country: GB (occurrence: GB)
  Receive Date: 20250817
  Receipt Date: 20250817
  Transmission Date: 20251020
  Serious: Yes (Death, Life-Threatening, Hospitalization, Other)
  Sender: MACLEODS
  Company Number: None

PATIENT

DRUGS (1)
  1. LEVOFLOXACIN [Suspect]
     Active Substance: LEVOFLOXACIN
     Indication: Cellulitis
     Route: 042
     Dates: start: 20250727

REACTIONS (6)
  - Seizure [Fatal]
  - Chronic obstructive pulmonary disease [Unknown]
  - Urinary tract infection [Unknown]
  - Cellulitis [Unknown]
  - Constipation [Unknown]
  - Memory impairment [Unknown]

NARRATIVE: CASE EVENT DATE: 20250728
